FAERS Safety Report 21154019 (Version 2)
Quarter: 2022Q4

REPORT INFORMATION
  Report Type: Spontaneous
  Country: JP (occurrence: JP)
  Receive Date: 20220801
  Receipt Date: 20221201
  Transmission Date: 20230113
  Serious: Yes (Hospitalization)
  Sender: FDA-Public Use
  Company Number: JP-NOVARTISPH-NVSJ2022JP095204

PATIENT
  Age: 69 Year
  Sex: Male

DRUGS (1)
  1. ENTRESTO [Suspect]
     Active Substance: SACUBITRIL\VALSARTAN
     Indication: Hypertension
     Dosage: UNK
     Route: 048
     Dates: start: 20220603, end: 20220701

REACTIONS (7)
  - Rhabdomyolysis [Recovered/Resolved]
  - Gait disturbance [Unknown]
  - Asthenia [Unknown]
  - Hypokalaemia [Unknown]
  - Concomitant disease aggravated [Unknown]
  - Diarrhoea [Unknown]
  - Large intestine erosion [Unknown]

NARRATIVE: CASE EVENT DATE: 20220628
